FAERS Safety Report 7699042-2 (Version None)
Quarter: 2011Q3

REPORT INFORMATION
  Report Type: 
  Country: None (occurrence: None)
  Receive Date: 20110819
  Receipt Date: 20110811
  Transmission Date: 20111222
  Serious: Yes (Hospitalization, Other)
  Sender: FDA-Public Use
  Company Number: PHHY2010JP73993

PATIENT
  Age: 48 Year
  Sex: Male

DRUGS (8)
  1. OXALIPLATIN [Suspect]
     Indication: LARGE INTESTINE CARCINOMA
  2. AVASTIN [Concomitant]
     Indication: LARGE INTESTINE CARCINOMA
     Dosage: UNK
     Route: 042
  3. ZOMETA [Suspect]
     Dosage: UNK
     Dates: start: 20101005
  4. BEVACIZUMAB [Concomitant]
     Indication: RECTAL CANCER
  5. ZOMETA [Suspect]
     Dosage: UNK
     Dates: start: 20101028
  6. ZOMETA [Suspect]
     Indication: METASTASES TO BONE
     Dosage: UNK
     Route: 041
     Dates: start: 20100914
  7. CAPECITABINE [Suspect]
     Indication: RECTAL CANCER
  8. WARFARIN SODIUM [Concomitant]
     Dosage: UNK
     Route: 048

REACTIONS (11)
  - DRUG INTERACTION [None]
  - BLOOD BILIRUBIN INCREASED [None]
  - RENAL FAILURE ACUTE [None]
  - BLOOD CREATININE INCREASED [None]
  - ENDOTHELIAL DYSFUNCTION [None]
  - HAEMATURIA [None]
  - OLIGURIA [None]
  - HAEMOLYTIC ANAEMIA [None]
  - RENAL IMPAIRMENT [None]
  - DISSEMINATED INTRAVASCULAR COAGULATION [None]
  - HAEMATOCHEZIA [None]
